FAERS Safety Report 8021185 (Version 3)
Quarter: 2012Q4

REPORT INFORMATION
  Report Type: Report from Study
  Country: IT (occurrence: IT)
  Receive Date: 20110705
  Receipt Date: 20121129
  Transmission Date: 20130627
  Serious: Yes (Hospitalization)
  Sender: FDA-Public Use
  Company Number: IT-ROCHE-785934

PATIENT
  Age: 53 Year
  Sex: Female

DRUGS (1)
  1. BEVACIZUMAB [Suspect]
     Indication: COLON CANCER
     Route: 042
     Dates: start: 20070813, end: 20071005

REACTIONS (2)
  - Hepatic failure [Recovered/Resolved]
  - Hepatic function abnormal [Recovered/Resolved]
